FAERS Safety Report 12496212 (Version 2)
Quarter: 2016Q2

REPORT INFORMATION
  Report Type: Spontaneous
  Country: BR (occurrence: BR)
  Receive Date: 20160624
  Receipt Date: 20160628
  Transmission Date: 20160815
  Serious: Yes (Death, Hospitalization, Other)
  Sender: FDA-Public Use
  Company Number: BR-PFIZER INC-2016313683

PATIENT
  Age: 14 Month
  Sex: Female
  Weight: 10 kg

DRUGS (1)
  1. SOLU-MEDROL [Suspect]
     Active Substance: METHYLPREDNISOLONE SODIUM SUCCINATE
     Dosage: 0.3ML OF 50 MG/ML, EVERY 3 OR 6 HOURS

REACTIONS (3)
  - Coma [Unknown]
  - Cardio-respiratory arrest [Fatal]
  - Cerebral ischaemia [Unknown]
